FAERS Safety Report 8592134-5 (Version None)
Quarter: 2012Q3

REPORT INFORMATION
  Report Type: 
  Country: None (occurrence: None)
  Receive Date: 20120814
  Receipt Date: 20120801
  Transmission Date: 20120928
  Serious: Yes (Other)
  Sender: FDA-Public Use
  Company Number: US-BAYER-2012-079169

PATIENT
  Age: 33 Year
  Sex: Female

DRUGS (6)
  1. YASMIN [Suspect]
     Dosage: UNK
     Dates: start: 20040101, end: 20061201
  2. GABAPENTIN [Concomitant]
     Dosage: 100 MG, TID
     Dates: start: 20100422
  3. YAZ [Suspect]
     Dosage: UNK
     Dates: start: 20070201, end: 20100725
  4. PROPOXYPHENE NA [Concomitant]
     Dosage: 100-650 MG FIVE DAYS
     Dates: start: 20100422
  5. FAMCICLOVIR [Concomitant]
     Dosage: 500 MG, TID FOR 7 DAYS
     Dates: start: 20100422
  6. CIPRODEX [Concomitant]
     Dosage: 0.3-0.1% 5 DAYS
     Dates: start: 20100610

REACTIONS (3)
  - INJURY [None]
  - DEEP VEIN THROMBOSIS [None]
  - PAIN [None]
